FAERS Safety Report 15610464 (Version 1)
Quarter: 2018Q4

REPORT INFORMATION
  Report Type: Spontaneous
  Country: US (occurrence: US)
  Receive Date: 20181113
  Receipt Date: 20181113
  Transmission Date: 20190205
  Serious: No
  Sender: FDA-Public Use
  Company Number: US-ROCHE-2071535

PATIENT
  Sex: Female
  Weight: 23.61 kg

DRUGS (2)
  1. SYMBICORT [Concomitant]
     Active Substance: BUDESONIDE\FORMOTEROL FUMARATE DIHYDRATE
     Indication: PNEUMONITIS
     Dosage: YES
     Route: 065
  2. TAMIFLU [Suspect]
     Active Substance: OSELTAMIVIR PHOSPHATE
     Indication: INFLUENZA
     Dosage: 10 ML BY MOUTH, 2 TIMES DAILY ;ONGOING: UNKNOWN
     Route: 048
     Dates: start: 20180205

REACTIONS (1)
  - Vomiting [Unknown]
